FAERS Safety Report 5269898-1 (Version None)
Quarter: 2007Q1

REPORT INFORMATION
  Report Type: 
  Country: None (occurrence: None)
  Receive Date: 20070320
  Receipt Date: 20070316
  Transmission Date: 20070707
  Serious: Yes (Other)
  Sender: FDA-Public Use
  Company Number: IT-GLAXOSMITHKLINE-B0462543A

PATIENT
  Age: 34 Year
  Sex: Male

DRUGS (2)
  1. AUGMENTIN '125' [Suspect]
     Indication: PHARYNGOTONSILLITIS
     Dosage: 1G TWICE PER DAY
     Route: 048
     Dates: start: 20070202, end: 20070210
  2. PROPOLIS [Concomitant]
     Route: 048

REACTIONS (2)
  - COLITIS [None]
  - DIARRHOEA [None]
